FAERS Safety Report 4388897-5 (Version None)
Quarter: 2004Q2

REPORT INFORMATION
  Report Type: 
  Country: None (occurrence: None)
  Receive Date: 20040628
  Receipt Date: 20040621
  Transmission Date: 20050107
  Serious: Yes (Death, Life-Threatening)
  Sender: FDA-Public Use
  Company Number: 04GER0125

PATIENT
  Age: 75 Year
  Sex: Male

DRUGS (5)
  1. AGGRASTAT [Suspect]
     Indication: ACUTE CORONARY SYNDROME
     Dosage: 52 ML/HR, INTRAVENOUS
     Route: 042
     Dates: start: 20040307, end: 20040307
  2. AGGRASTAT [Suspect]
     Indication: ACUTE CORONARY SYNDROME
     Dosage: 13 ML/HR, INTRAVENOUS
     Route: 042
     Dates: start: 20040307, end: 20040308
  3. CLOPIDOGREL (CLOPIDOGREL) [Concomitant]
  4. HEPARIN [Concomitant]
  5. NITROGLYCERIN [Concomitant]

REACTIONS (7)
  - APHASIA [None]
  - BRAIN OEDEMA [None]
  - CEREBRAL HAEMORRHAGE [None]
  - DEPRESSED LEVEL OF CONSCIOUSNESS [None]
  - INTRAVENTRICULAR HAEMORRHAGE [None]
  - RECTAL HAEMORRHAGE [None]
  - THROMBOCYTOPENIA [None]
